FAERS Safety Report 9414302 (Version 1)
Quarter: 2013Q3

REPORT INFORMATION
  Report Type: Report from Study
  Country: NL (occurrence: NL)
  Receive Date: 20130723
  Receipt Date: 20130723
  Transmission Date: 20140515
  Serious: Yes (Other)
  Sender: FDA-Public Use
  Company Number: NL-ASTELLAS-2013US007521

PATIENT
  Sex: Male

DRUGS (1)
  1. ERLOTINIB TABLET [Suspect]
     Indication: LUNG NEOPLASM MALIGNANT
     Dosage: UNK
     Route: 065

REACTIONS (11)
  - Skin haemorrhage [Unknown]
  - Hyperaesthesia [Unknown]
  - Hyperaesthesia [Unknown]
  - Hyperaesthesia [Unknown]
  - Dry mouth [Unknown]
  - Scab [Unknown]
  - Alopecia [Unknown]
  - Skin irritation [Unknown]
  - Dry eye [Unknown]
  - Pruritus [Unknown]
  - Dry skin [Unknown]
